FAERS Safety Report 9570856 (Version 1)
Quarter: 2013Q3

REPORT INFORMATION
  Report Type: Spontaneous
  Country: US (occurrence: None)
  Receive Date: 20130927
  Receipt Date: 20130927
  Transmission Date: 20140515
  Serious: Yes (Death)
  Sender: FDA-Public Use
  Company Number: 2013AT000142

PATIENT
  Age: 81 Year
  Sex: Male

DRUGS (1)
  1. TESTOPEL [Suspect]
     Indication: PRODUCT USED FOR UNKNOWN INDICATION
     Dates: start: 20130501

REACTIONS (1)
  - Death [None]
